FAERS Safety Report 5592661-9 (Version None)
Quarter: 2008Q1

REPORT INFORMATION
  Report Type: 
  Country: None (occurrence: None)
  Receive Date: 20080114
  Receipt Date: 20071227
  Transmission Date: 20080703
  Serious: Yes (Death, Life-Threatening, Hospitalization)
  Sender: FDA-Public Use
  Company Number: 20084507

PATIENT
  Age: 52 Year
  Sex: Male

DRUGS (2)
  1. LIORESAL [Suspect]
     Indication: MUSCLE SPASTICITY
     Dosage: 91.52 MCG, DAILY, INTRATHECAL
     Route: 037
  2. ZANAFLEX [Concomitant]

REACTIONS (3)
  - ACCIDENTAL OVERDOSE [None]
  - MYOCARDIAL INFARCTION [None]
  - SECONDARY PROGRESSIVE MULTIPLE SCLEROSIS [None]
